FAERS Safety Report 6827447-8 (Version None)
Quarter: 2010Q3

REPORT INFORMATION
  Report Type: 
  Country: None (occurrence: None)
  Receive Date: 20100709
  Receipt Date: 20070112
  Transmission Date: 20110219
  Serious: No
  Sender: FDA-Public Use
  Company Number: US-PFIZER INC-2007004861

PATIENT
  Sex: Female
  Weight: 42.64 kg

DRUGS (4)
  1. CHANTIX [Suspect]
     Indication: SMOKING CESSATION THERAPY
     Dates: start: 20070102, end: 20070110
  2. VALSARTAN [Concomitant]
  3. PRILOSEC [Concomitant]
  4. VITAMINS [Concomitant]

REACTIONS (1)
  - VOMITING [None]
